FAERS Safety Report 14835756 (Version 1)
Quarter: 2018Q2

REPORT INFORMATION
  Report Type: Spontaneous
  Country: US (occurrence: US)
  Receive Date: 20180502
  Receipt Date: 20180502
  Transmission Date: 20180711
  Serious: Yes (Life-Threatening, Hospitalization)
  Sender: FDA-Public Use
  Company Number: US-TEVA-2018-US-887710

PATIENT
  Age: 4 Year
  Sex: Female

DRUGS (1)
  1. ONDANSETRON [Suspect]
     Active Substance: ONDANSETRON
     Indication: ACCIDENTAL OVERDOSE
     Dosage: INGESTED MOTHER^S 4MG TABLET AT OVERDOSE
     Route: 048

REACTIONS (9)
  - Balance disorder [Recovered/Resolved]
  - Accidental overdose [Recovering/Resolving]
  - Depressed level of consciousness [Recovered/Resolved]
  - Respiratory depression [Recovered/Resolved]
  - Sinus tachycardia [Unknown]
  - Speech disorder [Recovered/Resolved]
  - Flushing [Unknown]
  - Mydriasis [Recovered/Resolved]
  - Ataxia [Recovered/Resolved]
